FAERS Safety Report 22373972 (Version 1)
Quarter: 2023Q2

REPORT INFORMATION
  Report Type: Spontaneous
  Country: US (occurrence: US)
  Receive Date: 20230526
  Receipt Date: 20230526
  Transmission Date: 20230722
  Serious: No
  Sender: FDA-Public Use
  Company Number: US-PERRIGO-22US008951

PATIENT
  Age: 60 Year
  Sex: Male
  Weight: 82.54 kg

DRUGS (5)
  1. MINOXIDIL [Suspect]
     Active Substance: MINOXIDIL
     Indication: Alopecia
     Dosage: SMALL DAB, BID
     Route: 061
     Dates: start: 20220401, end: 20220406
  2. MINOXIDIL [Suspect]
     Active Substance: MINOXIDIL
     Dosage: SMALL DAB, QD
     Route: 061
     Dates: start: 20220407, end: 20220410
  3. MINOXIDIL [Suspect]
     Active Substance: MINOXIDIL
     Dosage: SMALL DAB, QOD
     Route: 061
     Dates: start: 20220424, end: 20220426
  4. ELIQUIS [Concomitant]
     Active Substance: APIXABAN
     Indication: Anticoagulant therapy
     Dosage: UNK
     Route: 065
     Dates: start: 2018
  5. FINASTERIDE [Concomitant]
     Active Substance: FINASTERIDE
     Indication: Alopecia
     Dosage: UNK
     Route: 065
     Dates: start: 20220401

REACTIONS (6)
  - Application site warmth [Recovered/Resolved]
  - Application site ulcer [Recovered/Resolved]
  - Application site pruritus [Recovered/Resolved]
  - Application site pain [Recovered/Resolved]
  - Inappropriate schedule of product administration [Recovered/Resolved]
  - Incorrect dose administered [Recovered/Resolved]

NARRATIVE: CASE EVENT DATE: 20220401
